FAERS Safety Report 16836159 (Version 1)
Quarter: 2019Q3

REPORT INFORMATION
  Report Type: Spontaneous
  Country: DE (occurrence: DE)
  Receive Date: 20190921
  Receipt Date: 20190921
  Transmission Date: 20191005
  Serious: Yes (Life-Threatening, Hospitalization, Other)
  Sender: FDA-Public Use
  Company Number: DE-AUROBINDO-AUR-APL-2019-060768

PATIENT
  Age: 32 Year
  Sex: Male
  Weight: 75 kg

DRUGS (2)
  1. IBUPROFEN. [Suspect]
     Active Substance: IBUPROFEN
     Indication: PRODUCT USED FOR UNKNOWN INDICATION
     Dosage: ANAMNESTIC 3X1 (600 MG)
     Route: 065
  2. SKILARENCE [Suspect]
     Active Substance: DIMETHYL FUMARATE
     Indication: PSORIASIS
     Dosage: 3X2 (720 MG)
     Route: 048
     Dates: start: 20171024, end: 20190724

REACTIONS (2)
  - Product use issue [Unknown]
  - Gastric perforation [Recovered/Resolved]

NARRATIVE: CASE EVENT DATE: 20190724
